FAERS Safety Report 5292179-7 (Version None)
Quarter: 2007Q2

REPORT INFORMATION
  Report Type: 
  Country: None (occurrence: None)
  Receive Date: 20070410
  Receipt Date: 20070330
  Transmission Date: 20071010
  Serious: Yes (Other)
  Sender: FDA-Public Use
  Company Number: US-ELI_LILLY_AND_COMPANY-US200703006751

PATIENT
  Sex: Male

DRUGS (4)
  1. HUMALOG [Suspect]
     Indication: DIABETES MELLITUS
     Dosage: 9 U, UNK
     Dates: start: 20061001
  2. HUMALOG [Suspect]
     Dosage: UNK, AS NEEDED
     Dates: start: 20061001
  3. HUMALOG [Suspect]
     Dates: start: 20060801, end: 20061001
  4. HUMALOG [Suspect]
     Dates: start: 20020101

REACTIONS (3)
  - BLOOD GLUCOSE DECREASED [None]
  - BLOOD GLUCOSE INCREASED [None]
  - RENAL FAILURE [None]
